FAERS Safety Report 5596789-9 (Version None)
Quarter: 2008Q1

REPORT INFORMATION
  Report Type: 
  Country: None (occurrence: None)
  Receive Date: 20080118
  Receipt Date: 20080109
  Transmission Date: 20080703
  Serious: Yes (Death, Other)
  Sender: FDA-Public Use
  Company Number: US-PFIZER INC-2008003262

PATIENT
  Sex: Female

DRUGS (12)
  1. ESTRING [Suspect]
     Indication: URINARY INCONTINENCE
     Route: 067
  2. TOPROL-XL [Concomitant]
  3. POTASSIUM CHLORIDE [Concomitant]
  4. RITALIN [Concomitant]
  5. PREDNISONE [Concomitant]
  6. ZOLOFT [Concomitant]
  7. LASIX [Concomitant]
  8. PROTONIX [Concomitant]
  9. CALCIUM GLUCONATE [Concomitant]
  10. ASPIRIN [Concomitant]
  11. VITAMIN B-12 [Concomitant]
  12. UREX [Concomitant]

REACTIONS (2)
  - CARDIAC FAILURE CONGESTIVE [None]
  - DEATH [None]
